FAERS Safety Report 17114109 (Version 3)
Quarter: 2020Q3

REPORT INFORMATION
  Report Type: Spontaneous
  Country: JP (occurrence: JP)
  Receive Date: 20191205
  Receipt Date: 20200812
  Transmission Date: 20201102
  Serious: Yes (Hospitalization, Other)
  Sender: FDA-Public Use
  Company Number: JP-SA-2019SA333318

PATIENT

DRUGS (8)
  1. ELPLAT [Suspect]
     Active Substance: OXALIPLATIN
     Indication: COLORECTAL CANCER
     Dosage: 130 MG/M2, Q3W
     Route: 041
     Dates: start: 20120306, end: 20120417
  2. CAPECITABINE. [Suspect]
     Active Substance: CAPECITABINE
     Dosage: 900 MG, Q3W
     Route: 048
     Dates: start: 20120605, end: 20121029
  3. CAPECITABINE. [Suspect]
     Active Substance: CAPECITABINE
     Dosage: 1200 MG, Q3W
     Route: 048
     Dates: start: 20120306, end: 20120502
  4. DEXAMETHASONE SODIUM PHOSPHATE. [Concomitant]
     Active Substance: DEXAMETHASONE SODIUM PHOSPHATE
     Indication: PROPHYLAXIS
     Dosage: 4 MG, Q3W
     Route: 048
     Dates: start: 20120306, end: 20120419
  5. BEVACIZUMAB. [Concomitant]
     Active Substance: BEVACIZUMAB
     Indication: COLORECTAL CANCER
     Dosage: 7.5 MG/KG
     Dates: start: 20120306, end: 20120915
  6. CAPECITABINE. [Suspect]
     Active Substance: CAPECITABINE
     Indication: COLORECTAL CANCER
     Dosage: 2000 MG/M2, QD
     Route: 048
  7. APREPITANT. [Concomitant]
     Active Substance: APREPITANT
     Dosage: UNK
     Dates: start: 20120306, end: 20120419
  8. PALONOSETRON HYDROCHLORIDE. [Concomitant]
     Active Substance: PALONOSETRON HYDROCHLORIDE
     Dosage: UNK
     Dates: start: 20120306, end: 20120417

REACTIONS (7)
  - Condition aggravated [Recovered/Resolved]
  - Proteinuria [Recovering/Resolving]
  - Blood creatinine increased [Unknown]
  - Splenomegaly [Recovered/Resolved]
  - Biliary obstruction [Unknown]
  - Hypersplenism [Unknown]
  - Thrombocytopenia [Recovered/Resolved]

NARRATIVE: CASE EVENT DATE: 20120508
